FAERS Safety Report 8597805-2 (Version None)
Quarter: 2012Q3

REPORT INFORMATION
  Report Type: 
  Country: None (occurrence: None)
  Receive Date: 20120816
  Receipt Date: 20120808
  Transmission Date: 20120928
  Serious: Yes (Other)
  Sender: FDA-Public Use
  Company Number: PHEH2012US015564

PATIENT
  Sex: Female

DRUGS (7)
  1. METOPROLOL TARTRATE [Suspect]
     Dosage: 0.5 TABLET (50 MG), BID
  2. VITAMIN D [Concomitant]
     Dosage: UNK UKN, UNK
  3. LOPRESSOR [Suspect]
     Dosage: 50 MG, UNK
  4. PREVACID [Concomitant]
     Dosage: UNK UKN, UNK
     Dates: start: 20070101
  5. LOPRESSOR [Suspect]
     Dosage: 0.5 DF (50 MG), BID
  6. LORAZEPAM [Concomitant]
     Dosage: UNK UKN, UNK
  7. VITAMIN B-12 [Concomitant]
     Dosage: UNK UKN, UNK

REACTIONS (4)
  - WRONG TECHNIQUE IN DRUG USAGE PROCESS [None]
  - OESOPHAGEAL CARCINOMA [None]
  - DIZZINESS [None]
  - HEADACHE [None]
